FAERS Safety Report 25300885 (Version 1)
Quarter: 2025Q2

REPORT INFORMATION
  Report Type: Spontaneous
  Country: US (occurrence: US)
  Receive Date: 20250512
  Receipt Date: 20250512
  Transmission Date: 20250716
  Serious: No
  Sender: MUNDIPHARMA EDO
  Company Number: US-NAPPMUNDI-GBR-2025-0125435

PATIENT
  Sex: Female

DRUGS (8)
  1. REZAFUNGIN ACETATE [Suspect]
     Active Substance: REZAFUNGIN ACETATE
     Indication: Mucocutaneous candidiasis
     Route: 065
  2. REZAFUNGIN ACETATE [Suspect]
     Active Substance: REZAFUNGIN ACETATE
     Indication: Vulvovaginal candidiasis
     Route: 065
  3. POSACONAZOLE [Concomitant]
     Active Substance: POSACONAZOLE
     Indication: Mucocutaneous candidiasis
     Route: 065
  4. POSACONAZOLE [Concomitant]
     Active Substance: POSACONAZOLE
     Indication: Vulvovaginal candidiasis
  5. CLOTRIMAZOLE [Concomitant]
     Active Substance: CLOTRIMAZOLE
     Indication: Vulvovaginal candidiasis
     Route: 065
  6. CLOTRIMAZOLE [Concomitant]
     Active Substance: CLOTRIMAZOLE
     Indication: Mucocutaneous candidiasis
  7. TERCONAZOLE [Concomitant]
     Active Substance: TERCONAZOLE
     Indication: Vulvovaginal candidiasis
     Route: 067
  8. TERCONAZOLE [Concomitant]
     Active Substance: TERCONAZOLE
     Indication: Mucocutaneous candidiasis

REACTIONS (1)
  - Off label use [Unknown]
